FAERS Safety Report 9536396 (Version 1)
Quarter: 2013Q3

REPORT INFORMATION
  Report Type: Spontaneous
  Country: US (occurrence: None)
  Receive Date: 20130917
  Receipt Date: 20130917
  Transmission Date: 20140515
  Serious: Yes (Other)
  Sender: FDA-Public Use
  Company Number: None

PATIENT
  Age: 69 Year
  Sex: Female
  Weight: 63.96 kg

DRUGS (1)
  1. VENLAFAXINE ER [Suspect]
     Indication: DEPRESSION
     Dosage: 1 PILL ONCE DAILY
     Dates: start: 2011

REACTIONS (2)
  - Depression [None]
  - Medication residue present [None]
